FAERS Safety Report 12625526 (Version 1)
Quarter: 2016Q3

REPORT INFORMATION
  Report Type: Report from Study
  Country: US (occurrence: US)
  Receive Date: 20160805
  Receipt Date: 20160805
  Transmission Date: 20161109
  Serious: Yes (Other)
  Sender: FDA-Public Use
  Company Number: US-ROCHE-769605

PATIENT
  Age: 54 Year
  Sex: Male
  Weight: 112.6 kg

DRUGS (16)
  1. VISMODEGIB [Suspect]
     Active Substance: VISMODEGIB
     Route: 048
  2. VISMODEGIB [Suspect]
     Active Substance: VISMODEGIB
     Route: 048
  3. LANTUS [Concomitant]
     Active Substance: INSULIN GLARGINE
     Dosage: DOSE : 5 UNITS SQ EVERY NIGHT.
     Route: 065
  4. SINGULAIR [Concomitant]
     Active Substance: MONTELUKAST SODIUM
     Dosage: DREPORTED AS: SINGULAR
     Route: 065
  5. ETOPOSIDE. [Suspect]
     Active Substance: ETOPOSIDE
     Indication: SMALL CELL LUNG CANCER
     Dosage: DOSE FORM: 2 HOUR INFUSION ?DOSE FREQUENCY: DAYS 1-3 OF CYCLES 1-4?TOTAL DOSE RECEIVED 717 MG.
     Route: 042
     Dates: start: 20110401
  6. VENTOLIN [Concomitant]
     Active Substance: ALBUTEROL SULFATE
     Dosage: DOSE FORM: PUFF ?DOSE FREQUENCY ADDED: 1 PUFF EVERY 6 HOURS AS REQUIRED?REPORTED NAME: VENTOUN
     Route: 065
  7. VISMODEGIB [Suspect]
     Active Substance: VISMODEGIB
     Route: 048
  8. JANUMET [Concomitant]
     Active Substance: METFORMIN HYDROCHLORIDE\SITAGLIPTIN PHOSPHATE
     Dosage: DOSE REPORTED : 50/1000MG
     Route: 065
  9. VISMODEGIB [Suspect]
     Active Substance: VISMODEGIB
     Indication: SMALL CELL LUNG CANCER
     Dosage: TOTAL DOSE ADMINISTERED 3000 MG.?ON 29/MAR/2011, 19/APR/2011, 10/MAY/2011, 21/JUN/2011, 02/AUG/2011,
     Route: 048
     Dates: start: 20110301, end: 20130402
  10. VISMODEGIB [Suspect]
     Active Substance: VISMODEGIB
     Route: 048
  11. LOMOTIL (UNITED STATES) [Concomitant]
     Indication: DIARRHOEA
     Dosage: DOSE FORM:TABLET? DOSE FREQUENCY: 1 TABLET TWICE A DAY AS REQUIRED
     Route: 048
  12. OMEPRAZOLE. [Concomitant]
     Active Substance: OMEPRAZOLE
     Route: 048
  13. CISPLATIN. [Suspect]
     Active Substance: CISPLATIN
     Indication: SMALL CELL LUNG CANCER
     Dosage: DOSE FORM: 2 HOUR INFUSION?DOSE FREQUENCY: DAY 1 OF CYCLE 1-4?TOTAL DOSE RECEIVED 179.25 MG
     Route: 042
     Dates: start: 20110401
  14. FEXOFENADINE [Concomitant]
     Active Substance: FEXOFENADINE\FEXOFENADINE HYDROCHLORIDE
  15. ASA [Concomitant]
     Active Substance: ASPIRIN
  16. NASONEX [Concomitant]
     Active Substance: MOMETASONE FUROATE
     Dosage: DOSE FREQUECY: EVERY 12 HRS IF NEEDED
     Route: 065

REACTIONS (3)
  - Leukocytosis [Unknown]
  - Lung infection [Unknown]
  - Neutrophil count decreased [Recovered/Resolved]

NARRATIVE: CASE EVENT DATE: 20110318
